FAERS Safety Report 16594791 (Version 2)
Quarter: 2020Q1

REPORT INFORMATION
  Report Type: Spontaneous
  Country: JP (occurrence: JP)
  Receive Date: 20190718
  Receipt Date: 20200218
  Transmission Date: 20200409
  Serious: Yes (Other)
  Sender: FDA-Public Use
  Company Number: JP-BAUSCH-BL-2019-019966

PATIENT
  Age: 16 Year
  Sex: Male

DRUGS (6)
  1. PREDNISOLONE. [Suspect]
     Active Substance: PREDNISOLONE
     Indication: NEPHROTIC SYNDROME
     Dosage: DURING ADMISSION AT THE AGE OF 51 YEARS
     Route: 065
     Dates: start: 2018, end: 2018
  2. CYCLOSPORIN A [Concomitant]
     Active Substance: CYCLOSPORINE
     Indication: GLOMERULONEPHRITIS MINIMAL LESION
  3. PREDNISOLONE. [Suspect]
     Active Substance: PREDNISOLONE
     Indication: GLOMERULONEPHRITIS MINIMAL LESION
     Route: 065
     Dates: start: 1982, end: 2009
  4. PREDNISOLONE. [Suspect]
     Active Substance: PREDNISOLONE
     Dosage: AT 5 WEEKS AFTER THE START OF TREATMENT
     Route: 065
     Dates: start: 2018
  5. CYCLOSPORIN A [Concomitant]
     Active Substance: CYCLOSPORINE
     Indication: NEPHROTIC SYNDROME
     Dates: start: 2018
  6. PREDNISOLONE. [Suspect]
     Active Substance: PREDNISOLONE
     Dosage: REDUCED THE DOSE WEEKLY BY 2.5-5 MG/DAY
     Route: 065
     Dates: start: 2018, end: 2018

REACTIONS (2)
  - Substance-induced psychotic disorder [Recovered/Resolved]
  - Neuropsychiatric syndrome [Recovered/Resolved]

NARRATIVE: CASE EVENT DATE: 1983
